FAERS Safety Report 8266374-9 (Version None)
Quarter: 2012Q2

REPORT INFORMATION
  Report Type: 
  Country: None (occurrence: None)
  Receive Date: 20120406
  Receipt Date: 20120329
  Transmission Date: 20120825
  Serious: Yes (Other)
  Sender: FDA-Public Use
  Company Number: US-FRI-1000029455

PATIENT
  Sex: Female

DRUGS (3)
  1. THYROID TAB [Suspect]
     Dosage: 90 MG
     Route: 048
     Dates: start: 20111101, end: 20120101
  2. THYROID TAB [Suspect]
     Dosage: 60 MG
     Route: 048
     Dates: start: 20120101
  3. LANTUS [Concomitant]

REACTIONS (5)
  - PAIN IN EXTREMITY [None]
  - WEIGHT INCREASED [None]
  - DIABETES MELLITUS [None]
  - DEPRESSION [None]
  - CHEST DISCOMFORT [None]
